FAERS Safety Report 19232257 (Version 7)
Quarter: 2022Q4

REPORT INFORMATION
  Report Type: Report from Study
  Country: JP (occurrence: JP)
  Receive Date: 20210507
  Receipt Date: 20221205
  Transmission Date: 20230112
  Serious: Yes (Hospitalization, Other)
  Sender: FDA-Public Use
  Company Number: JP-AMRYT PHARMACEUTICALS DAC-AEGR005162

PATIENT

DRUGS (54)
  1. METRELEPTIN [Suspect]
     Active Substance: METRELEPTIN
     Indication: Lipoatrophy
     Dosage: 0.5 MILLIGRAM, QD
     Route: 058
     Dates: start: 20210202, end: 20210302
  2. METRELEPTIN [Suspect]
     Active Substance: METRELEPTIN
     Indication: Lipoatrophy
     Dosage: 0.75 MILLIGRAM, QD
     Route: 058
     Dates: start: 20210303, end: 20210323
  3. METRELEPTIN [Suspect]
     Active Substance: METRELEPTIN
     Dosage: 1 MILLIGRAM, QD
     Route: 058
     Dates: start: 20210324, end: 20210406
  4. METRELEPTIN [Suspect]
     Active Substance: METRELEPTIN
     Dosage: 1.2 MILLIGRAM, QD
     Route: 058
     Dates: start: 20210407, end: 20210506
  5. METRELEPTIN [Suspect]
     Active Substance: METRELEPTIN
     Dosage: 1 MILLIGRAM, QD
     Dates: start: 20210507, end: 20210525
  6. METRELEPTIN [Suspect]
     Active Substance: METRELEPTIN
     Dosage: 0.75 MILLIGRAM, QD
     Route: 058
     Dates: start: 20210526, end: 20210623
  7. METRELEPTIN [Suspect]
     Active Substance: METRELEPTIN
     Dosage: 0.5 MILLIGRAM, QD
     Route: 058
     Dates: start: 20210624, end: 20210707
  8. METRELEPTIN [Suspect]
     Active Substance: METRELEPTIN
     Dosage: 0.25 MILLIGRAM, QD
     Route: 058
     Dates: start: 20210708, end: 20210720
  9. METRELEPTIN [Suspect]
     Active Substance: METRELEPTIN
     Dosage: 0.5 MILLIGRAM, QD
     Route: 058
     Dates: start: 20210817, end: 20210824
  10. METRELEPTIN [Suspect]
     Active Substance: METRELEPTIN
     Dosage: 0.75 MILLIGRAM, QD
     Route: 058
     Dates: start: 20210825, end: 20210901
  11. METRELEPTIN [Suspect]
     Active Substance: METRELEPTIN
     Dosage: 1 MILLIGRAM, QD
     Route: 058
     Dates: start: 20210902, end: 20210914
  12. METRELEPTIN [Suspect]
     Active Substance: METRELEPTIN
     Dosage: 1.25 MILLIGRAM, QD
     Route: 058
     Dates: start: 20210915
  13. PEMAFIBRATE [Concomitant]
     Active Substance: PEMAFIBRATE
     Indication: Hepatic enzyme increased
     Dosage: 0.1 MILLIGRAM, QD
     Route: 048
     Dates: start: 20210428, end: 20210430
  14. PEMAFIBRATE [Concomitant]
     Active Substance: PEMAFIBRATE
     Indication: Hepatic enzyme increased
  15. PEMAFIBRATE [Concomitant]
     Active Substance: PEMAFIBRATE
     Indication: Glycosylated haemoglobin increased
  16. PEMAFIBRATE [Concomitant]
     Active Substance: PEMAFIBRATE
     Indication: Blood triglycerides increased
  17. BEZAFIBRATE [Concomitant]
     Active Substance: BEZAFIBRATE
     Indication: Hepatic enzyme increased
     Dosage: 200 MILLIGRAM, QD
     Route: 048
     Dates: start: 20210430, end: 20210608
  18. BEZAFIBRATE [Concomitant]
     Active Substance: BEZAFIBRATE
     Indication: Glycosylated haemoglobin increased
     Dosage: 300 MILLIGRAM, QD
     Dates: start: 20210609
  19. BEZAFIBRATE [Concomitant]
     Active Substance: BEZAFIBRATE
     Indication: Blood cholesterol increased
  20. BEZAFIBRATE [Concomitant]
     Active Substance: BEZAFIBRATE
     Indication: Blood triglycerides increased
  21. OMEGA-3-ACID ETHYL ESTERS [Concomitant]
     Active Substance: OMEGA-3-ACID ETHYL ESTERS
     Indication: Hepatic enzyme increased
     Dosage: 2 GRAM, QD
     Route: 048
     Dates: start: 20210601
  22. OMEGA-3-ACID ETHYL ESTERS [Concomitant]
     Active Substance: OMEGA-3-ACID ETHYL ESTERS
     Indication: Hepatic enzyme increased
  23. OMEGA-3-ACID ETHYL ESTERS [Concomitant]
     Active Substance: OMEGA-3-ACID ETHYL ESTERS
     Indication: Glycosylated haemoglobin increased
  24. OMEGA-3-ACID ETHYL ESTERS [Concomitant]
     Active Substance: OMEGA-3-ACID ETHYL ESTERS
     Indication: Blood cholesterol increased
  25. OMEGA-3-ACID ETHYL ESTERS [Concomitant]
     Active Substance: OMEGA-3-ACID ETHYL ESTERS
     Indication: Blood triglycerides increased
  26. SINLESTAL [Concomitant]
     Indication: Hepatic enzyme increased
     Dosage: 250 MILLIGRAM
     Route: 048
     Dates: start: 20210804, end: 20210812
  27. SINLESTAL [Concomitant]
     Indication: Hepatic enzyme increased
  28. SINLESTAL [Concomitant]
     Indication: Glycosylated haemoglobin increased
  29. SINLESTAL [Concomitant]
     Indication: Blood cholesterol increased
  30. SINLESTAL [Concomitant]
     Indication: Blood triglycerides increased
  31. EZETIMIBE [Concomitant]
     Active Substance: EZETIMIBE
     Indication: Hepatic enzyme increased
     Dosage: 5 MILLIGRAM, QD
     Route: 048
     Dates: start: 20210813
  32. EZETIMIBE [Concomitant]
     Active Substance: EZETIMIBE
     Indication: Hepatic enzyme increased
  33. EZETIMIBE [Concomitant]
     Active Substance: EZETIMIBE
     Indication: Glycosylated haemoglobin increased
  34. EZETIMIBE [Concomitant]
     Active Substance: EZETIMIBE
     Indication: Blood cholesterol increased
  35. EZETIMIBE [Concomitant]
     Active Substance: EZETIMIBE
     Indication: Blood triglycerides increased
  36. ROSUVASTATIN [Concomitant]
     Active Substance: ROSUVASTATIN
     Indication: Hepatic enzyme increased
     Dosage: 2.5 MILLIGRAM, QD
     Dates: start: 20210813
  37. ROSUVASTATIN [Concomitant]
     Active Substance: ROSUVASTATIN
     Indication: Hepatic enzyme increased
  38. ROSUVASTATIN [Concomitant]
     Active Substance: ROSUVASTATIN
     Indication: Glycosylated haemoglobin increased
  39. ROSUVASTATIN [Concomitant]
     Active Substance: ROSUVASTATIN
     Indication: Blood cholesterol increased
  40. ROSUVASTATIN [Concomitant]
     Active Substance: ROSUVASTATIN
     Indication: Blood triglycerides increased
  41. MIYA-BM [Concomitant]
     Active Substance: CLOSTRIDIUM BUTYRICUM SPORES STRAIN M-55
     Indication: Diarrhoea
     Dosage: UNK
     Dates: start: 20210601
  42. CALONAL [Concomitant]
     Active Substance: ACETAMINOPHEN
     Indication: Gastroenteritis
     Dosage: UNK
     Dates: start: 20210611, end: 20210614
  43. CALONAL [Concomitant]
     Active Substance: ACETAMINOPHEN
     Indication: Headache
     Dosage: UNK
     Dates: start: 20211006, end: 20211021
  44. BIFIDOBACTERIUM SPP. [Concomitant]
     Active Substance: BIFIDOBACTERIUM SPP.
     Indication: Gastroenteritis
     Dosage: UNK
     Dates: start: 20210611, end: 20210614
  45. DIMETHICONE [Concomitant]
     Active Substance: DIMETHICONE
     Indication: Abdominal distension
     Dosage: UNK
     Dates: start: 20210721, end: 20210804
  46. XYZAL [Concomitant]
     Active Substance: LEVOCETIRIZINE DIHYDROCHLORIDE
     Indication: Prophylaxis
     Dosage: UNK
     Dates: start: 20210817
  47. AMOXICILLIN [Concomitant]
     Active Substance: AMOXICILLIN
     Indication: Acute sinusitis
     Dosage: UNK
     Dates: start: 20211021, end: 20211026
  48. PETROLATUM [Concomitant]
     Active Substance: PETROLATUM
     Indication: Proctitis
     Dosage: UNK
     Dates: start: 20211028, end: 20211104
  49. POSTERISAN AKUT [Concomitant]
     Indication: Proctitis
     Dosage: UNK
     Dates: start: 20211028, end: 20211104
  50. OLOPATADINE HYDROCHLORIDE [Concomitant]
     Active Substance: OLOPATADINE HYDROCHLORIDE
     Indication: Rhinitis allergic
     Dosage: UNK
     Dates: start: 20210309, end: 20210407
  51. AMOXICILLIN [Concomitant]
     Active Substance: AMOXICILLIN
     Indication: Otitis media acute
     Dosage: UNK
     Dates: start: 20211225, end: 20220103
  52. ALLELOCK [Concomitant]
     Active Substance: OLOPATADINE HYDROCHLORIDE
     Indication: Otitis media acute
     Dosage: UNK
     Dates: start: 20211225, end: 20220103
  53. CARBOCYSTEINE [Concomitant]
     Active Substance: CARBOCYSTEINE
     Indication: Otitis media acute
     Dosage: UNK
     Dates: start: 20211225, end: 20220111
  54. CLARITHROMYCIN [Concomitant]
     Active Substance: CLARITHROMYCIN
     Indication: Otitis media acute
     Dosage: UNK
     Dates: start: 20220104, end: 20220111

REACTIONS (14)
  - Blood cholesterol increased [Not Recovered/Not Resolved]
  - Blood triglycerides increased [Not Recovered/Not Resolved]
  - Glycosylated haemoglobin increased [Not Recovered/Not Resolved]
  - Diarrhoea [Not Recovered/Not Resolved]
  - Neutralising antibodies positive [Not Recovered/Not Resolved]
  - Gastroenteritis [Recovered/Resolved]
  - Acute sinusitis [Recovered/Resolved]
  - Proctitis [Recovered/Resolved]
  - Rhinitis allergic [Recovered/Resolved]
  - Otitis media acute [Not Recovered/Not Resolved]
  - Abdominal distension [Not Recovered/Not Resolved]
  - Hepatic enzyme increased [Not Recovered/Not Resolved]
  - Hepatic enzyme increased [Not Recovered/Not Resolved]
  - Headache [Recovered/Resolved]

NARRATIVE: CASE EVENT DATE: 20210309
